FAERS Safety Report 25581644 (Version 1)
Quarter: 2025Q3

REPORT INFORMATION
  Report Type: Spontaneous
  Country: US (occurrence: US)
  Receive Date: 20250719
  Receipt Date: 20250719
  Transmission Date: 20251020
  Serious: Yes (Other)
  Sender: SANOFI AVENTIS
  Company Number: US-SA-2025SA195068

PATIENT
  Age: 70 Year
  Sex: Male

DRUGS (1)
  1. ALTUVIIIO [Suspect]
     Active Substance: EFANESOCTOCOG ALFA
     Route: 042

REACTIONS (4)
  - Traumatic haematoma [Unknown]
  - Fall [Unknown]
  - Head injury [Unknown]
  - Eye contusion [Unknown]

NARRATIVE: CASE EVENT DATE: 20250701
